FAERS Safety Report 15619023 (Version 1)
Quarter: 2018Q4

REPORT INFORMATION
  Report Type: Spontaneous
  Country: US (occurrence: US)
  Receive Date: 20181114
  Receipt Date: 20181114
  Transmission Date: 20190205
  Serious: Yes (Life-Threatening)
  Sender: FDA-Public Use
  Company Number: None

PATIENT
  Age: 46 Year
  Sex: Female
  Weight: 90.45 kg

DRUGS (6)
  1. ADVAIR HFA [Concomitant]
     Active Substance: FLUTICASONE PROPIONATE\SALMETEROL XINAFOATE
  2. HALAVEN [Suspect]
     Active Substance: ERIBULIN MESYLATE
     Indication: BREAST CANCER METASTATIC
     Dosage: ?          OTHER FREQUENCY:ONCE A WEEK;OTHER ROUTE:INJECTION THROUGH CHEMO PORT?
     Dates: start: 20181012, end: 20181012
  3. ZINC. [Concomitant]
     Active Substance: ZINC
  4. DAILY VITAMIN [Concomitant]
     Active Substance: VITAMINS
  5. SINGULAIR [Concomitant]
     Active Substance: MONTELUKAST SODIUM
  6. MAGNESIUM [Concomitant]
     Active Substance: MAGNESIUM

REACTIONS (5)
  - Lethargy [None]
  - Amnesia [None]
  - Alopecia [None]
  - Metastases to central nervous system [None]
  - Neuropathy peripheral [None]

NARRATIVE: CASE EVENT DATE: 20181012
